FAERS Safety Report 4570505-1 (Version None)
Quarter: 2005Q1

REPORT INFORMATION
  Report Type: 
  Country: None (occurrence: None)
  Receive Date: 20050204
  Receipt Date: 20050112
  Transmission Date: 20050727
  Serious: Yes (Other)
  Sender: FDA-Public Use
  Company Number: PHNU2005DE00528

PATIENT
  Age: 65 Year
  Sex: Male
  Weight: 83 kg

DRUGS (3)
  1. PREDNISONE [Suspect]
     Indication: PROSTATE CANCER METASTATIC
     Dosage: 12.5 MG, UNK
     Route: 048
     Dates: start: 20040909
  2. ZOMETA [Suspect]
     Indication: METASTASES TO BONE
     Dosage: 4 MG, QMO
     Route: 042
     Dates: start: 20041126
  3. NOVANTRONE [Suspect]
     Indication: PROSTATE CANCER METASTATIC
     Dosage: 12 MG, TIW
     Route: 042
     Dates: start: 20041118

REACTIONS (3)
  - DRUG INTERACTION [None]
  - HYPERCHOLESTEROLAEMIA [None]
  - HYPERTRIGLYCERIDAEMIA [None]
